FAERS Safety Report 8963199 (Version 1)
Quarter: 2012Q4

REPORT INFORMATION
  Report Type: Report from Study
  Country: GB (occurrence: GB)
  Receive Date: 20121214
  Receipt Date: 20121214
  Transmission Date: 20130627
  Serious: Yes (Hospitalization)
  Sender: FDA-Public Use
  Company Number: GB-PFIZER INC-2012304978

PATIENT
  Age: 62 Year
  Sex: Female
  Weight: 93.7 kg

DRUGS (9)
  1. CYCLOPHOSPHAMIDE [Suspect]
     Indication: NODULAR (FOLLICULAR) LYMPHOMA
     Dosage: UNK
     Dates: start: 20070213
  2. DOXORUBICIN [Suspect]
     Indication: NODULAR (FOLLICULAR) LYMPHOMA
     Dosage: UNK
     Dates: start: 20070213
  3. PREDNISOLONE [Suspect]
     Indication: NODULAR (FOLLICULAR) LYMPHOMA
     Dosage: UNK
     Dates: start: 20070213
  4. RITUXIMAB [Suspect]
     Indication: NODULAR (FOLLICULAR) LYMPHOMA
     Dosage: UNK
     Route: 042
     Dates: start: 20070213
  5. RITUXIMAB [Suspect]
     Dosage: 730 mg, 1x/day
     Route: 042
     Dates: start: 20070906, end: 20071101
  6. VINCRISTINE SULFATE [Suspect]
     Indication: NODULAR (FOLLICULAR) LYMPHOMA
     Dosage: UNK
     Dates: start: 20070213
  7. LISINOPRIL [Concomitant]
     Dosage: 20 mg, UNK
  8. ATENOLOL [Concomitant]
     Dosage: 50 mg, UNK
  9. OMEPRAZOLE [Concomitant]
     Dosage: 20 mg, UNK

REACTIONS (1)
  - Pharyngitis [Recovered/Resolved]
